FAERS Safety Report 5637832-8 (Version None)
Quarter: 2008Q1

REPORT INFORMATION
  Report Type: 
  Country: None (occurrence: None)
  Receive Date: 20080221
  Receipt Date: 20080211
  Transmission Date: 20080703
  Serious: Yes (Other)
  Sender: FDA-Public Use
  Company Number: 2008003684

PATIENT
  Age: 36 Year
  Sex: Female

DRUGS (3)
  1. LISTERINE WHITENING QUICK DISSOLVING STRIPS (NO ACTIVE INGREDIENT) [Suspect]
     Indication: DENTAL CARE
     Dosage: 2 STRIPS TWICE DAILY, ORAL
     Route: 048
     Dates: start: 20080127, end: 20080210
  2. KLONOPIN [Concomitant]
  3. LYRICA [Concomitant]

REACTIONS (2)
  - TONGUE BLISTERING [None]
  - TONGUE ULCERATION [None]
